FAERS Safety Report 7934699-X (Version None)
Quarter: 2011Q4

REPORT INFORMATION
  Report Type: 
  Country: None (occurrence: None)
  Receive Date: 20111122
  Receipt Date: 20110810
  Transmission Date: 20120403
  Serious: No
  Sender: FDA-Public Use
  Company Number: US-BAYER-2011-071612

PATIENT
  Age: 70 Year
  Sex: Male

DRUGS (5)
  1. LEVITRA [Suspect]
     Indication: SEXUAL DYSFUNCTION
     Dosage: 20 MG, QD
     Route: 048
     Dates: start: 20100101, end: 20100101
  2. CHOLESTEROL- AND TRIGLYCERIDE REDUCERS [Concomitant]
  3. LISINOPRIL [Concomitant]
  4. ATENOLOL [Concomitant]
  5. CELEBREX [Concomitant]

REACTIONS (1)
  - DRUG INEFFECTIVE [None]
